FAERS Safety Report 9600707 (Version 1)
Quarter: 2013Q4

REPORT INFORMATION
  Report Type: Spontaneous
  Country: US (occurrence: US)
  Receive Date: 20131004
  Receipt Date: 20131004
  Transmission Date: 20140711
  Serious: No
  Sender: FDA-Public Use
  Company Number: US-AMGEN-USASP2013036026

PATIENT
  Age: 62 Year
  Sex: Female

DRUGS (18)
  1. ENBREL [Suspect]
     Indication: PRODUCT USED FOR UNKNOWN INDICATION
     Dosage: 50 MG, QWK
     Route: 058
     Dates: end: 201005
  2. AZASITE [Concomitant]
     Dosage: 1 % SOLUTION, UNK
  3. FLUOCINONIDE [Concomitant]
     Dosage: 0.05 % SOLUTION, UNK
  4. DULERA [Concomitant]
     Dosage: 100-5 MCG
  5. VERAPAMIL [Concomitant]
     Dosage: 100 MG ER, UNK
  6. VERAMYST [Concomitant]
     Dosage: 27.5 MUG, UNK
  7. K-DUR [Concomitant]
     Dosage: 20 MEQ CR, UNK
  8. ATORVASTATIN [Concomitant]
     Dosage: 10 MG, UNK
  9. DOXYCYCLINE HYDROCHLORIDE [Concomitant]
     Dosage: 100 MG, UNK
  10. OXYBUTYNIN [Concomitant]
     Dosage: 5 MG, UNK
  11. DEXILANT [Concomitant]
     Dosage: 30 MG DR, UNK
  12. BUMETANIDE [Concomitant]
     Dosage: 0.5 MG, UNK
  13. CYCLOBENZAPRINE [Concomitant]
     Dosage: 5 MG, UNK
  14. EVOXAC [Concomitant]
     Dosage: 30 MG, UNK
  15. MONTELUKAST [Concomitant]
     Dosage: 5 MG CHW, UNK
  16. COMBIVENT [Concomitant]
     Dosage: UNK
  17. ALLEGRA [Concomitant]
     Dosage: 180 MG, UNK
  18. LEVALBUTEROL [Concomitant]
     Dosage: 0.63 MG,  UNK

REACTIONS (1)
  - Drug ineffective [Unknown]
